FAERS Safety Report 10189456 (Version 1)
Quarter: 2014Q2

REPORT INFORMATION
  Report Type: Spontaneous
  Country: US (occurrence: US)
  Receive Date: 20140522
  Receipt Date: 20140522
  Transmission Date: 20141212
  Serious: Yes (Hospitalization)
  Sender: FDA-Public Use
  Company Number: US-PFIZER INC-2014140115

PATIENT
  Sex: Female
  Weight: 47.62 kg

DRUGS (1)
  1. NORPACE CR [Suspect]
     Indication: HEART RATE IRREGULAR
     Dosage: 100 MG, 2X/DAY
     Route: 048

REACTIONS (1)
  - Uterine disorder [Unknown]
